FAERS Safety Report 16690585 (Version 1)
Quarter: 2019Q3

REPORT INFORMATION
  Report Type: Spontaneous
  Country: US (occurrence: US)
  Receive Date: 20190810
  Receipt Date: 20190810
  Transmission Date: 20191004
  Serious: No
  Sender: FDA-Public Use
  Company Number: US-009507513-1907USA012845

PATIENT
  Age: 65 Year
  Sex: Male

DRUGS (3)
  1. PROVENTIL [Suspect]
     Active Substance: ALBUTEROL
     Dosage: AS NEEDED 2 PUFF DAILY
  2. PROVENTIL [Suspect]
     Active Substance: ALBUTEROL
     Dosage: AS NEEDED 2 PUFF DAILY
  3. PROVENTIL [Suspect]
     Active Substance: ALBUTEROL
     Dosage: AS NEEDED 2 PUFF DAILY
     Dates: start: 201809

REACTIONS (5)
  - Poor quality device used [Unknown]
  - Poor quality device used [Unknown]
  - No adverse event [Unknown]
  - Product quality issue [Unknown]
  - Product quality issue [Unknown]

NARRATIVE: CASE EVENT DATE: 20190719
